FAERS Safety Report 8719870 (Version 3)
Quarter: 2012Q4

REPORT INFORMATION
  Report Type: 
  Country: BR (occurrence: BR)
  Receive Date: 20120813
  Receipt Date: 20121012
  Transmission Date: 20130627
  Serious: Yes (Hospitalization, Other)
  Sender: FDA-Public Use
  Company Number: BR-PFIZER INC-2012190863

PATIENT
  Age: 52 Year
  Sex: Female
  Weight: 39 kg

DRUGS (7)
  1. LYRICA [Suspect]
     Indication: PROCEDURAL PAIN
     Dosage: 75 mg, 2x/day
     Route: 048
     Dates: start: 201204, end: 20120626
  2. LYRICA [Suspect]
     Dosage: 75 mg, alternate day
     Dates: start: 201206, end: 20120629
  3. LYRICA [Suspect]
     Dosage: 75 mg
     Route: 048
     Dates: start: 201207
  4. LYRICA [Suspect]
     Dosage: 75 mg, 1x/day in alternate day
     Route: 048
     Dates: start: 2012
  5. EUTHYROX [Concomitant]
     Indication: THYROID DISORDER
     Dosage: UNK
  6. LOSARTAN [Concomitant]
     Indication: BLOOD PRESSURE INCREASED
     Dosage: UNK
  7. RIVOTRIL [Concomitant]
     Dosage: More than 50 drops

REACTIONS (18)
  - Dehydration [Unknown]
  - Fatigue [Unknown]
  - Asthenia [Unknown]
  - Retching [Not Recovered/Not Resolved]
  - Decreased appetite [Not Recovered/Not Resolved]
  - Gastritis [Not Recovered/Not Resolved]
  - Drug withdrawal syndrome [Unknown]
  - Depressed mood [Recovered/Resolved]
  - Weight decreased [Not Recovered/Not Resolved]
  - Vomiting [Recovered/Resolved]
  - Sluggishness [Recovered/Resolved]
  - Insomnia [Recovered/Resolved]
  - Drug dependence [Not Recovered/Not Resolved]
  - Influenza [Unknown]
  - Diarrhoea [Unknown]
  - Depression [Unknown]
  - Nausea [Unknown]
  - Frequent bowel movements [Unknown]
